FAERS Safety Report 8117748-8 (Version None)
Quarter: 2011Q4

REPORT INFORMATION
  Report Type: 
  Country: None (occurrence: None)
  Receive Date: 20111227
  Receipt Date: 20101207
  Transmission Date: 20120403
  Serious: Yes (Hospitalization)
  Sender: FDA-Public Use
  Company Number: PHHY2010US59339

PATIENT
  Age: 84 Year
  Sex: Female

DRUGS (2)
  1. FEMARA [Suspect]
  2. ANTIHYPERTENSIVES (NO INGREDIENTS/SUBSTANCES) [Concomitant]

REACTIONS (1)
  - MYOCARDIAL INFARCTION [None]
